FAERS Safety Report 4790326-4 (Version None)
Quarter: 2005Q4

REPORT INFORMATION
  Report Type: 
  Country: None (occurrence: None)
  Receive Date: 20051005
  Receipt Date: 20051005
  Transmission Date: 20060501
  Serious: Yes (Hospitalization)
  Sender: FDA-Public Use
  Company Number: None

PATIENT
  Age: 64 Year
  Sex: Male

DRUGS (13)
  1. PHENYTOIN [Suspect]
     Indication: CONVULSION
     Dosage: 100MG PO TID
     Route: 048
     Dates: end: 20040808
  2. NIFEDIPINE [Concomitant]
  3. ROSIGLITAZONE [Concomitant]
  4. DOXAZOSIN [Concomitant]
  5. PAROXETINE CR [Concomitant]
  6. EPOETIN ALPHA [Concomitant]
  7. FUROSEMIDE [Concomitant]
  8. ISOSORBIDE [Concomitant]
  9. ASPIRIN [Concomitant]
  10. METOPROLOL [Concomitant]
  11. LISINOPRIL [Concomitant]
  12. SPIRONOLACTONE [Concomitant]
  13. CALCITRIOL [Concomitant]

REACTIONS (3)
  - ANTICONVULSANT DRUG LEVEL INCREASED [None]
  - ASTHENIA [None]
  - FALL [None]
